FAERS Safety Report 6541039-X (Version None)
Quarter: 2010Q1

REPORT INFORMATION
  Report Type: 
  Country: None (occurrence: None)
  Receive Date: 20100118
  Receipt Date: 20100112
  Transmission Date: 20100710
  Serious: Yes (Death, Other)
  Sender: FDA-Public Use
  Company Number: JP-ELI_LILLY_AND_COMPANY-JP200912005364

PATIENT
  Sex: Female
  Weight: 46.6 kg

DRUGS (20)
  1. ALIMTA [Suspect]
     Indication: LUNG ADENOCARCINOMA STAGE IV
     Dosage: 650 MG, 3/W
     Route: 042
     Dates: start: 20091027, end: 20091214
  2. PANVITAN [Concomitant]
     Indication: PROPHYLAXIS
     Dosage: 1 G, DAILY (1/D)
     Route: 048
     Dates: start: 20091016, end: 20091221
  3. HYDROXOCOBALAMIN ACETATE [Concomitant]
     Indication: PROPHYLAXIS
     Dosage: 1 MG, OTHER
     Route: 030
     Dates: start: 20091016, end: 20091214
  4. DEXART [Concomitant]
     Indication: PROPHYLAXIS
     Dosage: 8 MG, 3/W
     Route: 042
     Dates: start: 20091027, end: 20091214
  5. DECADRON [Concomitant]
     Indication: PROPHYLAXIS
     Dosage: 4 MG, DAY2, 3
     Route: 048
     Dates: start: 20091028, end: 20091216
  6. LOXOPROFEN [Concomitant]
     Indication: CANCER PAIN
     Dosage: 60 MG, 3/D
     Route: 048
     Dates: start: 20091118, end: 20091221
  7. BEZAFIBRATE [Concomitant]
     Indication: HYPERLIPIDAEMIA
     Dosage: 200 MG, DAILY (1/D)
     Route: 048
     Dates: end: 20091221
  8. FUROSEMIDE [Concomitant]
     Indication: CARDIAC FAILURE CHRONIC
     Dosage: 20 MG, DAILY (1/D)
     Route: 048
     Dates: end: 20091221
  9. NORVASC [Concomitant]
     Indication: HYPERTENSION
     Dosage: 5 MG, DAILY (1/D)
     Route: 048
     Dates: end: 20091221
  10. NU-LOTAN [Concomitant]
     Indication: HYPERTENSION
     Dosage: 25 MG, DAILY (1/D)
     Route: 048
     Dates: end: 20091221
  11. BASEN [Concomitant]
     Indication: DIABETES MELLITUS
     Dosage: 10 MG, 3/D
     Route: 048
     Dates: end: 20091221
  12. FOSAMAC [Concomitant]
     Indication: OSTEOPOROSIS
     Dosage: 35 MG, WEELKLY
     Route: 048
     Dates: end: 20091201
  13. DEZOLAM [Concomitant]
     Indication: CARDIAC FAILURE CHRONIC
     Dosage: 0.5 MG, DAILY (1/D)
     Route: 048
     Dates: end: 20091221
  14. OXYCONTIN [Concomitant]
     Indication: CANCER PAIN
     Dosage: 10 MG, DAILY (1/D)
     Route: 048
     Dates: start: 20090916, end: 20091221
  15. PANTOSIN [Concomitant]
     Indication: CONSTIPATION PROPHYLAXIS
     Dosage: 200 MG, DAILY (1/D)
     Route: 048
     Dates: start: 20090916, end: 20091221
  16. SEISHOKU [Concomitant]
     Dosage: 250 ML, 3/W
     Route: 042
     Dates: start: 20091027, end: 20091214
  17. GAMOFA [Concomitant]
     Indication: GASTRITIS PROPHYLAXIS
     Dosage: 40 MG, DAILY (1/D)
     Route: 048
     Dates: start: 20091118, end: 20091221
  18. MUCOSTA [Concomitant]
     Indication: GASTRITIS PROPHYLAXIS
     Dosage: 300 MG, DAILY (1/D)
     Route: 048
     Dates: start: 20091118, end: 20091221
  19. CELESTAMINE TAB [Concomitant]
     Indication: PROPHYLAXIS
     Dosage: 3 D/F, DAY4, 5, 6
     Route: 048
     Dates: start: 20091121, end: 20091219
  20. MAGMITT [Concomitant]
     Indication: CONSTIPATION PROPHYLAXIS
     Dosage: 660 MG, DAILY (1/D)
     Route: 048
     Dates: start: 20091214, end: 20091214

REACTIONS (7)
  - ANAEMIA [None]
  - BLOOD CREATININE INCREASED [None]
  - C-REACTIVE PROTEIN INCREASED [None]
  - DISSEMINATED INTRAVASCULAR COAGULATION [None]
  - PERITONITIS [None]
  - RASH [None]
  - WHITE BLOOD CELL COUNT DECREASED [None]
